FAERS Safety Report 10635772 (Version 3)
Quarter: 2015Q2

REPORT INFORMATION
  Report Type: Spontaneous
  Country: JP (occurrence: JP)
  Receive Date: 20141205
  Receipt Date: 20150604
  Transmission Date: 20150821
  Serious: Yes (Death, Hospitalization, Disabling, Other)
  Sender: FDA-Public Use
  Company Number: JP-AMGEN-JPNSP2014094887

PATIENT
  Age: 71 Year
  Sex: Male
  Weight: 54 kg

DRUGS (41)
  1. PARIET [Concomitant]
     Active Substance: RABEPRAZOLE SODIUM
     Indication: SHORT-BOWEL SYNDROME
     Dosage: 10 MG, QD
     Route: 048
     Dates: start: 20120622
  2. LASIX [Concomitant]
     Active Substance: FUROSEMIDE
     Indication: CHRONIC KIDNEY DISEASE
  3. FULCALIQ [Concomitant]
     Active Substance: AMINO ACIDS\CARBOHYDRATES\ELECTROLYTES NOS\VITAMINS
     Indication: SHORT-BOWEL SYNDROME
     Dosage: 1100 ML, UNK
     Route: 042
     Dates: start: 20120606
  4. ELNEOPA NO.2 [Concomitant]
     Active Substance: AMINO ACIDS\CARBOHYDRATES\ELECTROLYTES NOS\VITAMINS
     Indication: SHORT-BOWEL SYNDROME
     Dosage: 1000 ML, QWK
     Route: 042
     Dates: start: 20120611, end: 20120618
  5. NEUTROGIN [Concomitant]
     Active Substance: LENOGRASTIM
     Indication: FEBRILE NEUTROPENIA
     Dosage: 250 MG, QD
     Route: 042
     Dates: start: 20120618
  6. MAXIPIME [Concomitant]
     Active Substance: CEFEPIME HYDROCHLORIDE
     Indication: FEBRILE NEUTROPENIA
     Dosage: 1 G, QD
     Route: 042
     Dates: start: 20120616, end: 20120624
  7. MILLISROL [Concomitant]
     Indication: MYOCARDIAL ISCHAEMIA
     Dosage: UNK
     Route: 042
     Dates: start: 20120822, end: 20120824
  8. MIYA-BM [Concomitant]
     Active Substance: CLOSTRIDIUM BUTYRICUM SPORES STRAIN M-55
     Indication: SHORT-BOWEL SYNDROME
     Dosage: 1 G, TID
     Route: 048
     Dates: start: 20120608
  9. RACOL [Concomitant]
     Active Substance: AMINO ACIDS\DEXTROSE\ELECTROLYTES NOS
     Indication: SHORT-BOWEL SYNDROME
     Dosage: 200 ML, QD
     Route: 048
     Dates: start: 20120729
  10. HOKUNALIN                          /00654901/ [Concomitant]
     Indication: CHRONIC OBSTRUCTIVE PULMONARY DISEASE
     Dosage: 2 MG, QD
     Route: 061
     Dates: start: 20120625
  11. WARFARIN [Concomitant]
     Active Substance: WARFARIN
     Indication: CEREBRAL INFARCTION
     Dosage: UNK, QD
     Route: 048
     Dates: start: 20090203, end: 20120419
  12. MYSLEE [Concomitant]
     Active Substance: ZOLPIDEM TARTRATE
     Indication: INSOMNIA
     Dosage: 2.5 MG, UNK
     Route: 048
  13. LACB-R [Concomitant]
     Indication: SHORT-BOWEL SYNDROME
     Dosage: 1 G, TID
     Route: 048
     Dates: end: 20120608
  14. MUCOSOLVAN L [Concomitant]
     Active Substance: AMBROXOL HYDROCHLORIDE
     Indication: CHRONIC OBSTRUCTIVE PULMONARY DISEASE
     Dosage: 45 MG, QD
     Route: 048
     Dates: start: 20120625
  15. ELEMENMIC [Concomitant]
     Active Substance: CUPRIC SULFATE\FERRIC CHLORIDE\MANGANESE CHLORIDE\POTASSIUM IODIDE\ZINC SULFATE
     Indication: IRON DEFICIENCY
  16. FUNGUARD [Concomitant]
     Active Substance: MICAFUNGIN SODIUM
     Indication: FEBRILE NEUTROPENIA
     Dosage: 150 MG, QD
     Route: 042
     Dates: start: 20120710, end: 20120813
  17. MEROPEN                            /01250501/ [Concomitant]
     Active Substance: MEROPENEM
     Indication: FEBRILE NEUTROPENIA
     Dosage: 0.5 G, QD
     Route: 042
     Dates: start: 20120711, end: 20120826
  18. WARKMIN [Concomitant]
     Active Substance: ALFACALCIDOL
     Indication: HYPERPARATHYROIDISM SECONDARY
     Dosage: 0.25 MG, QD
     Route: 048
     Dates: end: 20120623
  19. LASIX [Concomitant]
     Active Substance: FUROSEMIDE
     Indication: CHRONIC KIDNEY DISEASE
     Dosage: 40 MG, QD
     Route: 048
     Dates: start: 20120818, end: 20120826
  20. LASIX [Concomitant]
     Active Substance: FUROSEMIDE
     Indication: PLEURAL EFFUSION
  21. NITRODERM [Concomitant]
     Active Substance: NITROGLYCERIN
     Indication: MYOCARDIAL ISCHAEMIA
     Dosage: 25 MG, QD
     Route: 061
     Dates: start: 20120825
  22. SULBACILLIN [Concomitant]
     Active Substance: AMPICILLIN SODIUM\SULBACTAM SODIUM
     Indication: FEBRILE NEUTROPENIA
     Dosage: 3 G, QD
     Route: 042
     Dates: start: 20120702, end: 20120710
  23. MEROPEN                            /01250501/ [Concomitant]
     Active Substance: MEROPENEM
     Indication: PNEUMONIA
  24. NESP [Suspect]
     Active Substance: DARBEPOETIN ALFA
     Indication: NEPHROGENIC ANAEMIA
     Dosage: 180 MUG, Q4WK
     Route: 042
     Dates: start: 2009
  25. PROMAC [Suspect]
     Active Substance: NITROFURANTOIN
     Indication: ZINC DEFICIENCY
     Dosage: 75 MG, BID
     Route: 048
     Dates: end: 20120625
  26. NAUZELIN [Concomitant]
     Active Substance: DOMPERIDONE
     Indication: SHORT-BOWEL SYNDROME
     Dosage: 10 MG, TID
     Route: 048
     Dates: start: 20120621, end: 20120626
  27. LASIX [Concomitant]
     Active Substance: FUROSEMIDE
     Indication: OEDEMA
  28. DALACIN-S [Concomitant]
     Active Substance: CLINDAMYCIN\CLINDAMYCIN PHOSPHATE
     Indication: FEBRILE NEUTROPENIA
     Dosage: 600 MG, BID
     Route: 042
     Dates: start: 20120707, end: 20120710
  29. NEO-MINOPHAGEN C [Concomitant]
     Active Substance: AMMONIUM GLYCYRRHIZATE
     Indication: CHOLECYSTITIS CHRONIC
     Dosage: 20 ML, QD
     Route: 042
     Dates: start: 20120825, end: 20120826
  30. PLAVIX [Concomitant]
     Active Substance: CLOPIDOGREL BISULFATE
     Indication: CEREBRAL INFARCTION
     Dosage: 75 MG, QD
     Route: 048
     Dates: start: 20120419, end: 20120711
  31. PHELLOBERIN [Concomitant]
     Indication: SHORT-BOWEL SYNDROME
     Dosage: 2 DF, TID
     Route: 048
     Dates: start: 20120621, end: 20120626
  32. HOKUNALIN                          /00654901/ [Concomitant]
     Indication: CHRONIC OBSTRUCTIVE PULMONARY DISEASE
     Dosage: 2 MG, QD
     Route: 061
     Dates: start: 20120625
  33. ELEMENMIC [Concomitant]
     Active Substance: CUPRIC SULFATE\FERRIC CHLORIDE\MANGANESE CHLORIDE\POTASSIUM IODIDE\ZINC SULFATE
     Indication: SHORT-BOWEL SYNDROME
     Dosage: 1 DF, QWK
     Route: 042
     Dates: start: 2012
  34. PRIMOBOLAN-DEPOT [Concomitant]
     Active Substance: METHENOLONE ENANTHATE
     Indication: MYELODYSPLASTIC SYNDROME
     Dosage: 10 MG, BID
     Route: 048
     Dates: start: 20110401, end: 20120611
  35. METHYCOBAL [Concomitant]
     Active Substance: METHYLCOBALAMIN
     Indication: MYELODYSPLASTIC SYNDROME
     Dosage: 500 MG, BID
     Route: 048
     Dates: end: 20120608
  36. PREDNISOLONE. [Concomitant]
     Active Substance: PREDNISOLONE
     Indication: GLOMERULONEPHRITIS CHRONIC
     Dosage: 30 MG, QD
     Route: 048
     Dates: start: 20120214, end: 20120608
  37. LASIX [Concomitant]
     Active Substance: FUROSEMIDE
     Indication: ANURIA
  38. URSO [Concomitant]
     Active Substance: URSODIOL
     Indication: CHOLECYSTITIS CHRONIC
     Dosage: 100 MG, TID
     Route: 048
     Dates: start: 20120814
  39. INTRALIPOS [Concomitant]
     Active Substance: SOYBEAN OIL
     Indication: SHORT-BOWEL SYNDROME
     Dosage: 100 ML, 2 TIMES/WK
     Route: 042
     Dates: start: 20120611
  40. ALBUMIN [Concomitant]
     Active Substance: ALBUMIN (HUMAN)
     Indication: SHORT-BOWEL SYNDROME
     Dosage: 100 ML, 3 TIMES/WK
     Route: 042
     Dates: start: 20120623, end: 20120627
  41. TARGOCID [Concomitant]
     Active Substance: TEICOPLANIN
     Indication: FEBRILE NEUTROPENIA
     Dosage: 400 MG, BID
     Route: 042
     Dates: start: 20120710, end: 20120806

REACTIONS (20)
  - Pneumonia [Fatal]
  - Pleural effusion [Fatal]
  - Abnormal weight gain [Recovering/Resolving]
  - Escherichia sepsis [Unknown]
  - Anuria [Recovering/Resolving]
  - Glomerulosclerosis [Recovered/Resolved with Sequelae]
  - Febrile neutropenia [Recovered/Resolved]
  - Oedema [Recovering/Resolving]
  - Respiratory failure [Fatal]
  - Mesangioproliferative glomerulonephritis [Recovered/Resolved with Sequelae]
  - Ceruloplasmin decreased [Recovered/Resolved]
  - Chronic kidney disease [Recovered/Resolved with Sequelae]
  - Cerebellar infarction [Fatal]
  - Kidney fibrosis [Recovered/Resolved with Sequelae]
  - Blood copper decreased [Recovered/Resolved]
  - Anaemia macrocytic [Recovering/Resolving]
  - Gastroenteritis staphylococcal [Unknown]
  - Cardiac failure congestive [Fatal]
  - Pulmonary congestion [Recovering/Resolving]
  - Renal tubular disorder [Recovered/Resolved with Sequelae]

NARRATIVE: CASE EVENT DATE: 2011
